FAERS Safety Report 9054877 (Version 1)
Quarter: 2013Q1

REPORT INFORMATION
  Report Type: Report from Study
  Country: GB (occurrence: GB)
  Receive Date: 20130208
  Receipt Date: 20130208
  Transmission Date: 20140127
  Serious: Yes (Hospitalization)
  Sender: FDA-Public Use
  Company Number: GB-PFIZER INC-2013048318

PATIENT
  Age: 51 Year
  Sex: Female

DRUGS (4)
  1. CYCLOPHOSPHAMIDE [Suspect]
     Indication: BREAST CANCER
     Dosage: UNK
     Route: 065
     Dates: start: 20130111
  2. EPIRUBICIN HCL [Suspect]
     Indication: BREAST CANCER
     Dosage: UNK
     Route: 065
     Dates: start: 20130111
  3. FLUOROURACIL [Suspect]
     Indication: BREAST CANCER
     Dosage: UNK
     Dates: start: 20130111
  4. METOCLOPRAMIDE [Suspect]

REACTIONS (1)
  - Dyspnoea [Recovered/Resolved]
